FAERS Safety Report 23097678 (Version 1)
Quarter: 2023Q4

REPORT INFORMATION
  Report Type: Spontaneous
  Country: CN (occurrence: CN)
  Receive Date: 20231023
  Receipt Date: 20231023
  Transmission Date: 20240110
  Serious: Yes (Other)
  Sender: FDA-Public Use
  Company Number: CN-TAKEDA-2023TUS101945

PATIENT
  Age: 41 Year
  Sex: Female

DRUGS (5)
  1. ENTYVIO [Suspect]
     Active Substance: VEDOLIZUMAB
     Indication: Immunodeficiency common variable
     Dosage: UNK
     Route: 065
  2. ENTYVIO [Suspect]
     Active Substance: VEDOLIZUMAB
     Indication: Bruton^s agammaglobulinaemia
  3. ENTYVIO [Suspect]
     Active Substance: VEDOLIZUMAB
     Indication: Autoimmune enteropathy
  4. ENTYVIO [Suspect]
     Active Substance: VEDOLIZUMAB
     Indication: Diarrhoea
  5. HUMAN IMMUNOGLOBULIN G [Suspect]
     Active Substance: HUMAN IMMUNOGLOBULIN G
     Indication: Diarrhoea
     Dosage: UNK
     Route: 065

REACTIONS (4)
  - Skin disorder [None]
  - Arthritis [None]
  - Product use in unapproved indication [Unknown]
  - Inappropriate schedule of product administration [Unknown]
